FAERS Safety Report 15754472 (Version 3)
Quarter: 2025Q3

REPORT INFORMATION
  Report Type: Spontaneous
  Country: EU (occurrence: EU)
  Receive Date: 20181224
  Receipt Date: 20250718
  Transmission Date: 20251021
  Serious: Yes (Life-Threatening, Hospitalization, Other)
  Sender: AUROBINDO
  Company Number: EU-VELOXISUB-2017VELDE0538

PATIENT
  Age: 58 Year
  Sex: Female

DRUGS (4)
  1. FLUCONAZOLE [Suspect]
     Active Substance: FLUCONAZOLE
     Indication: Antifungal treatment
     Route: 048
  2. MYCOPHENOLATE MOFETIL [Suspect]
     Active Substance: MYCOPHENOLATE MOFETIL
     Indication: Immunosuppression
     Route: 065
  3. PREDNISONE [Suspect]
     Active Substance: PREDNISONE
     Indication: Immunosuppression
     Route: 065
  4. ENVARSUS XR [Suspect]
     Active Substance: TACROLIMUS
     Indication: Immunosuppressant drug therapy
     Route: 065

REACTIONS (6)
  - Multiple organ dysfunction syndrome [Recovering/Resolving]
  - Shock haemorrhagic [Recovering/Resolving]
  - Aspiration [Recovering/Resolving]
  - Haemorrhage [Recovering/Resolving]
  - Vascular pseudoaneurysm [Recovering/Resolving]
  - Candida infection [Recovering/Resolving]
